FAERS Safety Report 15269070 (Version 1)
Quarter: 2018Q3

REPORT INFORMATION
  Report Type: Spontaneous
  Country: TR (occurrence: TR)
  Receive Date: 20180813
  Receipt Date: 20180813
  Transmission Date: 20181010
  Serious: Yes (Hospitalization)
  Sender: FDA-Public Use
  Company Number: TR-TOLMAR, INC.-2018TR008032

PATIENT

DRUGS (1)
  1. ELIGARD [Suspect]
     Active Substance: LEUPROLIDE ACETATE
     Indication: HORMONE-DEPENDENT PROSTATE CANCER
     Dosage: 45 MG, EVERY 6 MONTHS
     Route: 065

REACTIONS (3)
  - Asthenia [Recovered/Resolved]
  - Decreased appetite [Recovered/Resolved]
  - Fatigue [Recovered/Resolved]
